FAERS Safety Report 14147951 (Version 1)
Quarter: 2017Q4

REPORT INFORMATION
  Report Type: Report from Study
  Country: US (occurrence: US)
  Receive Date: 20171031
  Receipt Date: 20171031
  Transmission Date: 20180321
  Serious: Yes (Other)
  Sender: FDA-Public Use
  Company Number: US-GILEAD-2017-0301414

PATIENT
  Age: 88 Year
  Sex: Female

DRUGS (3)
  1. IDELALISIB [Suspect]
     Active Substance: IDELALISIB
     Indication: HYPOGAMMAGLOBULINAEMIA
  2. IDELALISIB [Suspect]
     Active Substance: IDELALISIB
     Indication: CHRONIC LYMPHOCYTIC LEUKAEMIA RECURRENT
     Dosage: 150 MG, BID
     Route: 048
     Dates: start: 20161031
  3. IDELALISIB [Suspect]
     Active Substance: IDELALISIB
     Indication: DIFFUSE LARGE B-CELL LYMPHOMA

REACTIONS (1)
  - Osteoporosis [Unknown]
